FAERS Safety Report 17322847 (Version 1)
Quarter: 2020Q1

REPORT INFORMATION
  Report Type: Spontaneous
  Country: US (occurrence: US)
  Receive Date: 20200124
  Receipt Date: 20200124
  Transmission Date: 20200409
  Serious: Yes (Life-Threatening)
  Sender: FDA-Public Use
  Company Number: None

PATIENT
  Age: 55 Year
  Sex: Female
  Weight: 60.75 kg

DRUGS (5)
  1. DEXCOM CGM [Concomitant]
  2. LEVOTHYROXINE. [Concomitant]
     Active Substance: LEVOTHYROXINE
  3. FIASP [Suspect]
     Active Substance: INSULIN ASPART
     Indication: TYPE 1 DIABETES MELLITUS
     Dosage: ?          QUANTITY:1 INJECTION(S);?
     Route: 058
     Dates: start: 20190715, end: 20200122
  4. STATIN [Concomitant]
     Active Substance: UNSPECIFIED INGREDIENT
  5. INSULIN PUMP [Concomitant]
     Active Substance: INSULIN NOS

REACTIONS (7)
  - Feeling of despair [None]
  - Diarrhoea [None]
  - Product complaint [None]
  - Discomfort [None]
  - Rash vesicular [None]
  - Anxiety [None]
  - General physical health deterioration [None]

NARRATIVE: CASE EVENT DATE: 20200101
